FAERS Safety Report 20490665 (Version 1)
Quarter: 2022Q1

REPORT INFORMATION
  Report Type: Spontaneous
  Country: US (occurrence: None)
  Receive Date: 20220218
  Receipt Date: 20220218
  Transmission Date: 20220424
  Serious: Yes (Hospitalization)
  Sender: FDA-Public Use
  Company Number: None

PATIENT
  Age: 38 Year
  Sex: Female
  Weight: 48.1 kg

DRUGS (1)
  1. CISPLATIN [Suspect]
     Active Substance: CISPLATIN
     Dates: end: 20210429

REACTIONS (15)
  - Abdominal pain [None]
  - Bowel movement irregularity [None]
  - Faeces soft [None]
  - Haematochezia [None]
  - Decreased appetite [None]
  - Chills [None]
  - Dizziness [None]
  - Colitis [None]
  - Dehydration [None]
  - Radiation proctitis [None]
  - Anaemia [None]
  - Pelvic pain [None]
  - Proctalgia [None]
  - Rectal haemorrhage [None]
  - Rectal discharge [None]

NARRATIVE: CASE EVENT DATE: 20220105
